FAERS Safety Report 7068773-X (Version None)
Quarter: 2010Q4

REPORT INFORMATION
  Report Type: 
  Country: None (occurrence: None)
  Receive Date: 20101028
  Receipt Date: 20101022
  Transmission Date: 20110411
  Serious: Yes (Hospitalization)
  Sender: FDA-Public Use
  Company Number: US-B.I. PHARMACEUTICALS,INC./RIDGEFIELD-2010-BP-11195BP

PATIENT
  Sex: Female

DRUGS (6)
  1. SPIRIVA [Suspect]
     Indication: CHRONIC OBSTRUCTIVE PULMONARY DISEASE
     Dosage: 18 MCG
     Route: 055
     Dates: start: 20100101
  2. SIMVASTATIN [Concomitant]
     Indication: BLOOD CHOLESTEROL INCREASED
  3. FOLIC ACID [Concomitant]
     Dosage: 1 MG
  4. TRAMADOL HCL [Concomitant]
     Dosage: 30 MG
  5. VITAMIN B COMPLEX CAP [Concomitant]
  6. CO Q 10 [Concomitant]

REACTIONS (1)
  - SPINAL COLUMN STENOSIS [None]
